FAERS Safety Report 16169901 (Version 1)
Quarter: 2019Q2

REPORT INFORMATION
  Report Type: Spontaneous
  Country: US (occurrence: US)
  Receive Date: 20190405
  Receipt Date: 20190405
  Transmission Date: 20190711
  Serious: No
  Sender: FDA-Public Use
  Company Number: None

PATIENT
  Sex: Male

DRUGS (2)
  1. METHYLPHENIDATE HYDROCHLORIDE. [Suspect]
     Active Substance: METHYLPHENIDATE HYDROCHLORIDE
     Route: 048
     Dates: start: 20190110, end: 20190405
  2. GUANFACINE ER [Concomitant]
     Active Substance: GUANFACINE
     Dates: start: 20190109

REACTIONS (1)
  - Priapism [None]

NARRATIVE: CASE EVENT DATE: 20190405
